FAERS Safety Report 4766017-2 (Version None)
Quarter: 2005Q3

REPORT INFORMATION
  Report Type: 
  Country: None (occurrence: None)
  Receive Date: 20050912
  Receipt Date: 20050225
  Transmission Date: 20060218
  Serious: Yes (Hospitalization)
  Sender: FDA-Public Use
  Company Number: FR-GLAXOSMITHKLINE-B0373065A

PATIENT
  Sex: Male

DRUGS (9)
  1. RETROVIR [Suspect]
     Indication: ANTIVIRAL PROPHYLAXIS
     Route: 048
  2. RETROVIR [Suspect]
     Dates: start: 20020704, end: 20020704
  3. EPIVIR [Suspect]
     Indication: HIV INFECTION
     Dates: end: 20020428
  4. ZIAGEN [Suspect]
     Indication: HIV INFECTION
     Dates: end: 20020428
  5. VIDEX [Suspect]
     Indication: HIV INFECTION
     Dates: end: 20020428
  6. VIRAMUNE [Suspect]
     Indication: HIV INFECTION
     Dates: end: 20020428
  7. HIVID [Suspect]
     Indication: HIV INFECTION
     Dates: start: 20020429, end: 20020704
  8. KALETRA [Suspect]
     Indication: HIV INFECTION
     Dates: start: 20020429, end: 20020704
  9. VIREAD [Suspect]
     Indication: HIV INFECTION
     Dates: start: 20020429, end: 20020704

REACTIONS (9)
  - CAESAREAN SECTION [None]
  - CHROMOSOME ABNORMALITY [None]
  - COMMUNICATION DISORDER [None]
  - CRYING [None]
  - DEVELOPMENTAL DELAY [None]
  - DRUG EXPOSURE DURING PREGNANCY [None]
  - FEAR [None]
  - MENTAL RETARDATION SEVERITY UNSPECIFIED [None]
  - SLEEP DISORDER [None]
